FAERS Safety Report 22303466 (Version 3)
Quarter: 2023Q2

REPORT INFORMATION
  Report Type: Spontaneous
  Country: BE (occurrence: BE)
  Receive Date: 20230510
  Receipt Date: 20230524
  Transmission Date: 20230721
  Serious: Yes (Other)
  Sender: FDA-Public Use
  Company Number: BE-002147023-NVSC2023BE104304

PATIENT
  Sex: Female

DRUGS (4)
  1. ALPELISIB [Suspect]
     Active Substance: ALPELISIB
     Indication: Breast cancer metastatic
     Dosage: 250 MG, QD
     Route: 065
     Dates: start: 202202, end: 202204
  2. ALPELISIB [Suspect]
     Active Substance: ALPELISIB
     Dosage: 250 MG, QD
     Route: 065
  3. DOXICYCLINE [Concomitant]
     Indication: Product used for unknown indication
     Dosage: 200 MG
     Route: 065
     Dates: start: 20220401, end: 202204
  4. XGEVA [Concomitant]
     Active Substance: DENOSUMAB
     Indication: Product used for unknown indication
     Dosage: 200 MG
     Route: 065
     Dates: start: 20220401, end: 202204

REACTIONS (2)
  - Osteonecrosis [Recovered/Resolved]
  - Thrombocytopenia [Recovered/Resolved]
